FAERS Safety Report 8266574-8 (Version None)
Quarter: 2012Q2

REPORT INFORMATION
  Report Type: 
  Country: None (occurrence: None)
  Receive Date: 20120406
  Receipt Date: 20120321
  Transmission Date: 20120825
  Serious: Yes (Hospitalization)
  Sender: FDA-Public Use
  Company Number: HR-BAXTER-2012BAX000271

PATIENT
  Age: 60 Year
  Sex: Female

DRUGS (1)
  1. DIANEAL PD4 OTOPINA ZA PERITONEJSKU DIJALIZU [Suspect]
     Route: 033
     Dates: start: 20111115, end: 20120104

REACTIONS (3)
  - INFECTIOUS PERITONITIS [None]
  - BODY TEMPERATURE INCREASED [None]
  - EXCESSIVE GRANULATION TISSUE [None]
